FAERS Safety Report 24910292 (Version 1)
Quarter: 2025Q1

REPORT INFORMATION
  Report Type: Report from Study
  Country: US (occurrence: US)
  Receive Date: 20250131
  Receipt Date: 20250131
  Transmission Date: 20250409
  Serious: Yes (Hospitalization, Other)
  Sender: ALEXION PHARMACEUTICALS
  Company Number: US-AstraZeneca-CH-00796758A

PATIENT

DRUGS (1)
  1. OSIMERTINIB [Suspect]
     Active Substance: OSIMERTINIB
     Route: 065

REACTIONS (5)
  - Nephrolithiasis [Unknown]
  - Hydronephrosis [Unknown]
  - Benign neoplasm [Unknown]
  - Urinary tract infection [Unknown]
  - Hospitalisation [Unknown]
